FAERS Safety Report 8237836-5 (Version None)
Quarter: 2012Q1

REPORT INFORMATION
  Report Type: 
  Country: None (occurrence: None)
  Receive Date: 20120327
  Receipt Date: 20120316
  Transmission Date: 20120608
  Serious: Yes (Other)
  Sender: FDA-Public Use
  Company Number: AR-AMGEN-ARGSP2012011978

PATIENT
  Age: 66 Year
  Sex: Female

DRUGS (2)
  1. ENBREL [Suspect]
     Indication: RHEUMATOID ARTHRITIS
     Dosage: 50 MG, WEEKLY
     Route: 058
     Dates: start: 20100520, end: 20111001
  2. NAPROXEN [Concomitant]
     Dosage: UNK
     Route: 048

REACTIONS (3)
  - ANTIBODY TEST POSITIVE [None]
  - ORAL PUSTULE [None]
  - RASH PUSTULAR [None]
